FAERS Safety Report 21240067 (Version 1)
Quarter: 2022Q3

REPORT INFORMATION
  Report Type: Spontaneous
  Country: US (occurrence: None)
  Receive Date: 20220821
  Receipt Date: 20220821
  Transmission Date: 20221027
  Serious: Yes (Death)
  Sender: FDA-Public Use
  Company Number: None

PATIENT
  Age: 66 Year
  Sex: Male

DRUGS (2)
  1. CLOPIDOGREL [Suspect]
     Active Substance: CLOPIDOGREL BISULFATE
  2. ASPIRIN [Concomitant]
     Active Substance: ASPIRIN

REACTIONS (8)
  - Occult blood positive [None]
  - Tachycardia [None]
  - Haemoglobin decreased [None]
  - Gastrointestinal arteriovenous malformation [None]
  - Oesophageal disorder [None]
  - Arteriovenous malformation [None]
  - Hypoxia [None]
  - Hypotension [None]

NARRATIVE: CASE EVENT DATE: 20220407
